FAERS Safety Report 16845832 (Version 3)
Quarter: 2020Q1

REPORT INFORMATION
  Report Type: Spontaneous
  Country: US (occurrence: US)
  Receive Date: 20190924
  Receipt Date: 20200319
  Transmission Date: 20200409
  Serious: Yes (Other)
  Sender: FDA-Public Use
  Company Number: US-CATALYST PHARMACEUTICALS, INC-2019CAT00360

PATIENT
  Age: 64 Year
  Sex: Female
  Weight: 55.78 kg

DRUGS (9)
  1. FIRDAPSE [Suspect]
     Active Substance: AMIFAMPRIDINE
     Dosage: 10 MG, 3X/DAY
     Route: 048
     Dates: end: 202001
  2. ENALAPRIL [Concomitant]
     Active Substance: ENALAPRIL
     Dosage: 20 MG, 1X/DAY
  3. DOCUSATE SODIUM. [Concomitant]
     Active Substance: DOCUSATE SODIUM
     Indication: CONSTIPATION
  4. FIRDAPSE [Suspect]
     Active Substance: AMIFAMPRIDINE
     Indication: MYASTHENIA GRAVIS
     Dosage: 20 MG, 3X/DAY (MORNING, AFTERNOON, AND EVENING)
     Route: 048
     Dates: start: 201908, end: 2019
  5. ENALAPRIL [Concomitant]
     Active Substance: ENALAPRIL
     Indication: BLOOD PRESSURE ABNORMAL
     Dosage: 10 MG, 1X/DAY
  6. AMLODIPINE/BENAZEPRIL [Concomitant]
     Active Substance: AMLODIPINE BESYLATE\BENAZEPRIL HYDROCHLORIDE
     Dosage: 1 TABLETS, 1X/DAY
  7. PANTOPRAZOLE [Concomitant]
     Active Substance: PANTOPRAZOLE
     Dosage: 20 MG, 1X/DAY
  8. FIRDAPSE [Suspect]
     Active Substance: AMIFAMPRIDINE
     Dosage: 30 MG DAILY
     Route: 048
     Dates: start: 201908
  9. FIRDAPSE [Suspect]
     Active Substance: AMIFAMPRIDINE
     Indication: MYASTHENIC SYNDROME
     Dosage: 20 MG, 3X/DAY (MORNING, AFTERNOON, AND EVENING)
     Route: 048
     Dates: start: 2019

REACTIONS (17)
  - Drug ineffective [Recovered/Resolved]
  - Feeling cold [Unknown]
  - Vision blurred [Recovered/Resolved]
  - Hypoaesthesia oral [Not Recovered/Not Resolved]
  - Hypertension [Recovered/Resolved]
  - Presyncope [Recovered/Resolved]
  - Decreased appetite [Recovering/Resolving]
  - Peripheral coldness [Unknown]
  - Somnolence [Recovered/Resolved]
  - Product dose omission [Recovered/Resolved]
  - Dyspepsia [Recovered/Resolved]
  - Nocturia [Not Recovered/Not Resolved]
  - Off label use [Not Recovered/Not Resolved]
  - Amnesia [Not Recovered/Not Resolved]
  - Blood cholesterol decreased [Recovered/Resolved]
  - Abdominal pain upper [Unknown]
  - Paraesthesia oral [Not Recovered/Not Resolved]

NARRATIVE: CASE EVENT DATE: 2019
